FAERS Safety Report 16019365 (Version 1)
Quarter: 2019Q1

REPORT INFORMATION
  Report Type: Spontaneous
  Country: US (occurrence: US)
  Receive Date: 20190228
  Receipt Date: 20190228
  Transmission Date: 20190418
  Serious: No
  Sender: FDA-Public Use
  Company Number: US-TEVA-2019-US-1008509

PATIENT
  Sex: Female

DRUGS (1)
  1. MEFLOQUINE HYDROCHLORIDE TABLETS [Suspect]
     Active Substance: MEFLOQUINE HYDROCHLORIDE
     Indication: MALARIA PROPHYLAXIS
     Route: 065

REACTIONS (2)
  - Treatment noncompliance [Unknown]
  - Inappropriate schedule of product administration [None]
